FAERS Safety Report 10065323 (Version 2)
Quarter: 2015Q2

REPORT INFORMATION
  Report Type: Spontaneous
  Country: US (occurrence: US)
  Receive Date: 20140408
  Receipt Date: 20150409
  Transmission Date: 20150821
  Serious: Yes (Death, Life-Threatening, Hospitalization, Disabling, Other)
  Sender: FDA-Public Use
  Company Number: US-009507513-1404USA003960

PATIENT
  Sex: Male
  Weight: 72.56 kg

DRUGS (1)
  1. JANUMET [Suspect]
     Active Substance: METFORMIN HYDROCHLORIDE\SITAGLIPTIN PHOSPHATE
     Indication: TYPE 2 DIABETES MELLITUS
     Dosage: 50/1,000 MG, BID
     Route: 048
     Dates: start: 20120110, end: 20120725

REACTIONS (11)
  - Pancreatitis [Unknown]
  - Lung cancer metastatic [Unknown]
  - Hypokalaemia [Unknown]
  - Pancreatic carcinoma [Fatal]
  - Colon cancer metastatic [Unknown]
  - Asthenia [Unknown]
  - Diabetes mellitus inadequate control [Recovering/Resolving]
  - Hypertension [Unknown]
  - Hepatic cancer metastatic [Unknown]
  - Pulmonary embolism [Unknown]
  - Cough [Unknown]

NARRATIVE: CASE EVENT DATE: 201204
